FAERS Safety Report 4333285-0 (Version None)
Quarter: 2004Q2

REPORT INFORMATION
  Report Type: 
  Country: None (occurrence: None)
  Receive Date: 20040406
  Receipt Date: 20040329
  Transmission Date: 20050107
  Serious: No
  Sender: FDA-Public Use
  Company Number: 7725

PATIENT
  Sex: Male

DRUGS (1)
  1. CYTARABINE [Suspect]
     Indication: LEUKAEMIA
     Dosage: 140 MG FREQ

REACTIONS (4)
  - BLOOD PRESSURE DECREASED [None]
  - CHEST PAIN [None]
  - HYPERHIDROSIS [None]
  - TACHYCARDIA [None]
